FAERS Safety Report 5143378-6 (Version None)
Quarter: 2006Q4

REPORT INFORMATION
  Report Type: 
  Country: None (occurrence: None)
  Receive Date: 20061030
  Receipt Date: 20061017
  Transmission Date: 20070319
  Serious: Yes (Other)
  Sender: FDA-Public Use
  Company Number: 2006127510

PATIENT
  Age: 38 Year
  Sex: Female

DRUGS (3)
  1. NEURONTIN [Suspect]
     Indication: NEURALGIA
     Dosage: 300 MG (1 IN 1 D)
     Dates: start: 20031107, end: 20060819
  2. AVONEX [Suspect]
     Dosage: 50 MICROG (1 IN 1 WK), INTRAMUSCULAR
     Route: 030
     Dates: start: 20030804, end: 20060814
  3. CITALOPRAM HYDROBROMIDE [Concomitant]

REACTIONS (5)
  - ALANINE AMINOTRANSFERASE INCREASED [None]
  - ANTINUCLEAR ANTIBODY INCREASED [None]
  - ASPARTATE AMINOTRANSFERASE INCREASED [None]
  - ASTHENIA [None]
  - HEPATIC ENZYME INCREASED [None]
